FAERS Safety Report 4895509-0 (Version None)
Quarter: 2006Q1

REPORT INFORMATION
  Report Type: 
  Country: None (occurrence: None)
  Receive Date: 20060125
  Receipt Date: 20060117
  Transmission Date: 20060701
  Serious: Yes (Other)
  Sender: FDA-Public Use
  Company Number: 2005150040

PATIENT
  Age: 71 Year
  Sex: Female

DRUGS (3)
  1. LYRICA [Suspect]
     Indication: BRACHIAL PLEXUS INJURY
     Dosage: 150 MG (50 MG, 3 IN 1 D), ORAL
     Route: 048
  2. VICODIN [Concomitant]
  3. ULTRAM [Concomitant]

REACTIONS (6)
  - AGGRESSION [None]
  - ANGER [None]
  - ASTHENIA [None]
  - DISINHIBITION [None]
  - IRRITABILITY [None]
  - RECTAL HAEMORRHAGE [None]
